FAERS Safety Report 23807635 (Version 2)
Quarter: 2025Q1

REPORT INFORMATION
  Report Type: Spontaneous
  Country: US (occurrence: US)
  Receive Date: 20240502
  Receipt Date: 20250228
  Transmission Date: 20250408
  Serious: Yes (Hospitalization, Other)
  Sender: CHEPLAPHARM
  Company Number: US-ROCHE-2887983

PATIENT
  Age: 62 Year
  Sex: Female
  Weight: 74.456 kg

DRUGS (20)
  1. CAPECITABINE [Suspect]
     Active Substance: CAPECITABINE
     Indication: Breast cancer female
     Dosage: TAKE 2 TABLET(S) BY MOUTH TWICE A DAY ON DAYS 1-14 OUT OF A 21 DAY CYCLE
     Route: 048
     Dates: start: 20200221
  2. HERCEPTIN [Suspect]
     Active Substance: TRASTUZUMAB
     Indication: Breast cancer female
     Dates: start: 20150624
  3. HERCEPTIN [Suspect]
     Active Substance: TRASTUZUMAB
     Indication: Breast cancer female
     Dates: start: 20190918, end: 202002
  4. PERJETA [Suspect]
     Active Substance: PERTUZUMAB
     Indication: Breast cancer female
     Dates: start: 20190918, end: 202002
  5. KADCYLA [Suspect]
     Active Substance: ADO-TRASTUZUMAB EMTANSINE
     Indication: Breast cancer female
     Dosage: MOST RECENT DOSE: 14/SEP/2022
     Dates: start: 20220120
  6. TYKERB [Suspect]
     Active Substance: LAPATINIB DITOSYLATE
     Indication: Breast cancer female
     Route: 048
  7. TAXOL [Suspect]
     Active Substance: PACLITAXEL
     Indication: Breast cancer female
     Dates: start: 20150624
  8. TAXOL [Suspect]
     Active Substance: PACLITAXEL
     Indication: Breast cancer female
     Dates: start: 20190918
  9. NEUPOGEN [Concomitant]
     Active Substance: FILGRASTIM
  10. TAMOXIFEN [Concomitant]
     Active Substance: TAMOXIFEN
     Route: 048
  11. BREO ELLIPTA [Concomitant]
     Active Substance: FLUTICASONE FUROATE\VILANTEROL TRIFENATATE
  12. LASIX [Concomitant]
     Active Substance: FUROSEMIDE
     Route: 048
  13. LOSARTAN [Concomitant]
     Active Substance: LOSARTAN
     Route: 048
  14. METOPROLOL [Concomitant]
     Active Substance: METOPROLOL
     Route: 048
  15. TRIAMCINOLONE [Concomitant]
     Active Substance: TRIAMCINOLONE
  16. ADRIAMYCIN [Concomitant]
     Active Substance: DOXORUBICIN HYDROCHLORIDE
  17. CYTOXAN [Concomitant]
     Active Substance: CYCLOPHOSPHAMIDE
  18. NEULASTA [Concomitant]
     Active Substance: PEGFILGRASTIM
  19. ELIQUIS [Concomitant]
     Active Substance: APIXABAN
  20. FEMARA [Concomitant]
     Active Substance: LETROZOLE

REACTIONS (12)
  - Hemiplegia [Unknown]
  - Ischaemic stroke [Unknown]
  - Middle cerebral artery stroke [Unknown]
  - Cranial nerve paralysis [Unknown]
  - Dysphemia [Unknown]
  - Gait disturbance [Unknown]
  - Hypokinesia [Unknown]
  - Palmar-plantar erythrodysaesthesia syndrome [Unknown]
  - Tenderness [Unknown]
  - Quality of life decreased [Unknown]
  - Memory impairment [Unknown]
  - Confusional state [Unknown]

NARRATIVE: CASE EVENT DATE: 20200325
